FAERS Safety Report 7347230-7 (Version None)
Quarter: 2011Q1

REPORT INFORMATION
  Report Type: 
  Country: None (occurrence: None)
  Receive Date: 20110311
  Receipt Date: 20110301
  Transmission Date: 20110831
  Serious: Yes (Other)
  Sender: FDA-Public Use
  Company Number: JP-ELI_LILLY_AND_COMPANY-JP201102006080

PATIENT
  Sex: Female
  Weight: 50 kg

DRUGS (4)
  1. CYMBALTA [Suspect]
     Indication: DEPRESSION
     Dosage: 20 MG, DAILY (1/D)
     Route: 048
     Dates: start: 20110208, end: 20110210
  2. DEPAS [Concomitant]
     Indication: DEPRESSION
     Dosage: 0.5 MG, 3/D
     Route: 048
     Dates: start: 20100101
  3. GASMOTIN [Concomitant]
     Indication: ABDOMINAL DISCOMFORT
     Dosage: 5 MG, 3/D
     Route: 048
     Dates: start: 20100101
  4. JUUZENTAIHOTOU [Concomitant]
     Indication: CHRONIC FATIGUE SYNDROME
     Dosage: 2.5 MG, 3/D
     Route: 048
     Dates: start: 20100101

REACTIONS (3)
  - MALAISE [None]
  - SYNCOPE [None]
  - ACCOMMODATION DISORDER [None]
